FAERS Safety Report 4922187-4 (Version None)
Quarter: 2006Q1

REPORT INFORMATION
  Report Type: 
  Country: None (occurrence: None)
  Receive Date: 20060224
  Receipt Date: 20050426
  Transmission Date: 20060701
  Serious: Yes (Hospitalization, Disabling)
  Sender: FDA-Public Use
  Company Number: US-MERCK-0504USA04996

PATIENT
  Age: 50 Year
  Sex: Male
  Weight: 89 kg

DRUGS (2)
  1. VIOXX [Suspect]
     Indication: BACK INJURY
     Route: 048
     Dates: start: 19991101, end: 20020730
  2. VIOXX [Suspect]
     Route: 048
     Dates: start: 20021201, end: 20030101

REACTIONS (14)
  - ACUTE MYOCARDIAL INFARCTION [None]
  - ACUTE SINUSITIS [None]
  - BLOOD CHOLESTEROL INCREASED [None]
  - BRONCHITIS ACUTE [None]
  - CORONARY ARTERY DISEASE [None]
  - DIARRHOEA [None]
  - FALL [None]
  - GLUCOSE TOLERANCE IMPAIRED [None]
  - HEPATITIS C ANTIBODY POSITIVE [None]
  - HERNIA [None]
  - HYPERTENSION [None]
  - LIPIDS INCREASED [None]
  - SKELETAL INJURY [None]
  - VENTRICULAR EXTRASYSTOLES [None]
